FAERS Safety Report 13098510 (Version 1)
Quarter: 2017Q1

REPORT INFORMATION
  Report Type: Spontaneous
  Country: SI (occurrence: SI)
  Receive Date: 20170109
  Receipt Date: 20170109
  Transmission Date: 20170428
  Serious: Yes (Hospitalization)
  Sender: FDA-Public Use
  Company Number: SI-TEVA-724995ISR

PATIENT
  Sex: Female

DRUGS (4)
  1. SINTROM [Interacting]
     Active Substance: ACENOCOUMAROL
     Indication: ATRIAL FIBRILLATION
     Dosage: SHEME
     Route: 048
  2. DIUVER 10 MG [Concomitant]
     Dosage: IN THE MORNINGS
     Route: 048
  3. CORYOL 12,5 MG [Concomitant]
     Indication: HYPERTENSION
     Route: 048
  4. SUMAMED 500 MG [Suspect]
     Active Substance: AZITHROMYCIN
     Indication: RESPIRATORY TRACT INFECTION
     Dosage: 1TBL./DAY
     Route: 048

REACTIONS (2)
  - International normalised ratio increased [Recovered/Resolved]
  - Drug interaction [Unknown]
